FAERS Safety Report 15146504 (Version 2)
Quarter: 2018Q3

REPORT INFORMATION
  Report Type: Spontaneous
  Country: JP (occurrence: JP)
  Receive Date: 20180715
  Receipt Date: 20180808
  Transmission Date: 20181010
  Serious: Yes (Other)
  Sender: FDA-Public Use
  Company Number: GXJP2018JP001266

PATIENT
  Age: 67 Year
  Sex: Male

DRUGS (1)
  1. VALSARTAN TAB [Suspect]
     Active Substance: VALSARTAN
     Indication: HYPERTENSION
     Dosage: UNK
     Route: 048

REACTIONS (2)
  - Interstitial lung disease [Unknown]
  - Product substitution issue [Unknown]
